FAERS Safety Report 11309799 (Version 2)
Quarter: 2015Q4

REPORT INFORMATION
  Report Type: Spontaneous
  Country: GR (occurrence: GR)
  Receive Date: 20150724
  Receipt Date: 20151009
  Transmission Date: 20160304
  Serious: Yes (Death, Hospitalization)
  Sender: FDA-Public Use
  Company Number: GR-ABBVIE-15P-066-1433042-00

PATIENT
  Age: 56 Year
  Sex: Female

DRUGS (3)
  1. LOSEC [Concomitant]
     Active Substance: OMEPRAZOLE
     Indication: PRODUCT USED FOR UNKNOWN INDICATION
  2. KLARICID [Suspect]
     Active Substance: CLARITHROMYCIN
     Route: 065
     Dates: start: 2015, end: 2015
  3. KLARICID [Suspect]
     Active Substance: CLARITHROMYCIN
     Indication: TOOTH DISORDER
     Route: 065
     Dates: start: 201504

REACTIONS (4)
  - Thrombasthenia [Not Recovered/Not Resolved]
  - Infection [Unknown]
  - Septic shock [Fatal]
  - Aplastic anaemia [Fatal]

NARRATIVE: CASE EVENT DATE: 2015
